FAERS Safety Report 8308671-4 (Version None)
Quarter: 2012Q2

REPORT INFORMATION
  Report Type: 
  Country: None (occurrence: None)
  Receive Date: 20120424
  Receipt Date: 20120419
  Transmission Date: 20120825
  Serious: Yes (Hospitalization, Other)
  Sender: FDA-Public Use
  Company Number: US-PFIZER INC-2012098472

PATIENT
  Sex: Female
  Weight: 88.435 kg

DRUGS (2)
  1. XALKORI [Suspect]
     Indication: LUNG NEOPLASM MALIGNANT
     Dosage: 250 MG, 2X/DAY
     Dates: start: 20120101, end: 20120101
  2. COMPAZINE [Concomitant]
     Indication: NAUSEA
     Dosage: 10 MG, AS NEEDED

REACTIONS (4)
  - PNEUMONIA [None]
  - PAIN [None]
  - DYSPHAGIA [None]
  - OESOPHAGEAL DISORDER [None]
